FAERS Safety Report 21964611 (Version 1)
Quarter: 2023Q1

REPORT INFORMATION
  Report Type: Spontaneous
  Country: US (occurrence: US)
  Receive Date: 20230207
  Receipt Date: 20230207
  Transmission Date: 20230418
  Serious: Yes (Other)
  Sender: FDA-Public Use
  Company Number: US-ALLERGAN-2303159US

PATIENT
  Sex: Female

DRUGS (4)
  1. PREDNISOLONE [Suspect]
     Active Substance: PREDNISOLONE
     Indication: Uveitis
     Dosage: UNK, BID
     Route: 047
  2. KENALOG [Suspect]
     Active Substance: TRIAMCINOLONE ACETONIDE
     Indication: Uveitis
     Dosage: UNK
  3. ACETAZOLAMIDE [Suspect]
     Active Substance: ACETAZOLAMIDE
     Indication: Intraocular pressure increased
     Dosage: UNK
  4. ILEVRO [Suspect]
     Active Substance: NEPAFENAC
     Indication: Antiinflammatory therapy
     Dosage: UNK, BID
     Route: 047

REACTIONS (3)
  - Open angle glaucoma [Recovered/Resolved]
  - Condition aggravated [Unknown]
  - Uveitis [Unknown]
